APPROVED DRUG PRODUCT: ACULAR LS
Active Ingredient: KETOROLAC TROMETHAMINE
Strength: 0.4%
Dosage Form/Route: SOLUTION/DROPS;OPHTHALMIC
Application: N021528 | Product #001 | TE Code: AT
Applicant: ABBVIE INC
Approved: May 30, 2003 | RLD: Yes | RS: Yes | Type: RX

PATENTS:
Patent 8008338*PED | Expires: Nov 24, 2027
Patent 8008338 | Expires: May 24, 2027